FAERS Safety Report 12530785 (Version 1)
Quarter: 2016Q3

REPORT INFORMATION
  Report Type: Spontaneous
  Country: US (occurrence: None)
  Receive Date: 20160705
  Receipt Date: 20160705
  Transmission Date: 20161109
  Serious: Yes (Life-Threatening)
  Sender: FDA-Public Use
  Company Number: None

PATIENT
  Age: 26 Year
  Sex: Female

DRUGS (2)
  1. ONDANSETRON WEST-WARD [Suspect]
     Active Substance: ONDANSETRON
     Indication: NAUSEA
     Dosage: 4MG/2ML
     Route: 042
     Dates: start: 20160619
  2. VAZCULEP [Suspect]
     Active Substance: PHENYLEPHRINE HYDROCHLORIDE
     Indication: MEDICATION ERROR
     Dosage: 10 MG/ML
     Route: 042
     Dates: start: 20160619

REACTIONS (8)
  - Hypertension [None]
  - Product packaging confusion [None]
  - Pulmonary oedema [None]
  - Wrong drug administered [None]
  - Mitral valve incompetence [None]
  - Tricuspid valve incompetence [None]
  - Pulmonary hypertension [None]
  - Cardiomyopathy [None]

NARRATIVE: CASE EVENT DATE: 20160619
